FAERS Safety Report 17427377 (Version 3)
Quarter: 2020Q1

REPORT INFORMATION
  Report Type: Report from Study
  Country: None (occurrence: US)
  Receive Date: 20200217
  Receipt Date: 20200327
  Transmission Date: 20200409
  Serious: Yes (Other)
  Sender: FDA-Public Use
  Company Number: US-ABBVIE-20K-163-3272829-00

PATIENT
  Sex: Female
  Weight: 118.04 kg

DRUGS (1)
  1. SKYRIZI [Suspect]
     Active Substance: RISANKIZUMAB-RZAA
     Indication: PSORIASIS
     Route: 058
     Dates: start: 201906

REACTIONS (3)
  - Bronchitis [Recovered/Resolved]
  - Pulmonary fibrosis [Unknown]
  - Upper respiratory tract infection [Recovered/Resolved]
